FAERS Safety Report 18100032 (Version 4)
Quarter: 2020Q4

REPORT INFORMATION
  Report Type: Spontaneous
  Country: US (occurrence: US)
  Receive Date: 20200731
  Receipt Date: 20201224
  Transmission Date: 20210113
  Serious: Yes (Other)
  Sender: FDA-Public Use
  Company Number: US-GILEAD-2020-0487366

PATIENT
  Age: 55 Year
  Sex: Female

DRUGS (3)
  1. TRUVADA [Suspect]
     Active Substance: EMTRICITABINE\TENOFOVIR DISOPROXIL FUMARATE
     Indication: HIV INFECTION
     Dosage: UNK
     Route: 048
     Dates: start: 20060101, end: 2017
  2. BIKTARVY [Concomitant]
     Active Substance: BICTEGRAVIR SODIUM\EMTRICITABINE\TENOFOVIR ALAFENAMIDE FUMARATE
  3. ATRIPLA [Suspect]
     Active Substance: EFAVIRENZ\EMTRICITABINE\TENOFOVIR DISOPROXIL FUMARATE
     Indication: HIV INFECTION
     Dosage: UNK
     Route: 048
     Dates: start: 2013, end: 20181231

REACTIONS (11)
  - Bone density decreased [Unknown]
  - Anhedonia [Not Recovered/Not Resolved]
  - Bone loss [Unknown]
  - Pain [Not Recovered/Not Resolved]
  - Emotional distress [Not Recovered/Not Resolved]
  - Wrist fracture [Not Recovered/Not Resolved]
  - Anxiety [Not Recovered/Not Resolved]
  - Wrist fracture [Not Recovered/Not Resolved]
  - Osteonecrosis [Unknown]
  - Osteopenia [Not Recovered/Not Resolved]
  - Multiple fractures [Not Recovered/Not Resolved]

NARRATIVE: CASE EVENT DATE: 2014
